FAERS Safety Report 23642785 (Version 2)
Quarter: 2024Q2

REPORT INFORMATION
  Report Type: Spontaneous
  Country: US (occurrence: US)
  Receive Date: 20240318
  Receipt Date: 20240404
  Transmission Date: 20240716
  Serious: Yes (Death, Hospitalization)
  Sender: FDA-Public Use
  Company Number: US-TEVA-VS-3169907

PATIENT
  Age: 65 Year
  Sex: Female

DRUGS (1)
  1. METHOTREXATE [Suspect]
     Active Substance: METHOTREXATE
     Indication: Central nervous system lymphoma
     Route: 065

REACTIONS (10)
  - Pancytopenia [Unknown]
  - Acute respiratory distress syndrome [Fatal]
  - Shock [Fatal]
  - Haemoptysis [Fatal]
  - Sepsis [Fatal]
  - Acute kidney injury [Fatal]
  - Metabolic acidosis [Unknown]
  - Hyponatraemia [Unknown]
  - Toxicity to various agents [Fatal]
  - Rash [Unknown]
